FAERS Safety Report 9021683 (Version 1)
Quarter: 2013Q1

REPORT INFORMATION
  Report Type: Spontaneous
  Country: US (occurrence: US)
  Receive Date: 20130119
  Receipt Date: 20130119
  Transmission Date: 20140127
  Serious: No
  Sender: FDA-Public Use
  Company Number: US-ALLERGAN-1202958US

PATIENT
  Sex: Female

DRUGS (5)
  1. BOTOX COSMETIC [Suspect]
     Indication: HYPERHIDROSIS
     Dosage: 100 UNITS, SINGLE
     Route: 030
     Dates: start: 20120125, end: 20120125
  2. BOTOX COSMETIC [Suspect]
     Dosage: 100 UNITS, SINGLE
     Route: 030
     Dates: start: 20110810, end: 20110810
  3. VICODIN [Concomitant]
     Indication: FIBROMYALGIA
  4. SKELAXIN                           /00611501/ [Concomitant]
     Indication: FIBROMYALGIA
  5. IBUPROFEN [Concomitant]
     Indication: FIBROMYALGIA

REACTIONS (2)
  - Alopecia [Unknown]
  - Alopecia [Unknown]
